FAERS Safety Report 15939414 (Version 2)
Quarter: 2020Q3

REPORT INFORMATION
  Report Type: Spontaneous
  Country: PT (occurrence: PT)
  Receive Date: 20190208
  Receipt Date: 20190415
  Transmission Date: 20201104
  Serious: Yes (Hospitalization)
  Sender: FDA-Public Use
  Company Number: IND-PT-009507513-1902PRT000958

PATIENT
  Sex: Male
  Weight: 73 kg

DRUGS (1)
  1. ETORICOXIB. [Suspect]
     Active Substance: ETORICOXIB
     Indication: OROPHARYNGEAL PAIN
     Dosage: 60 MG
     Route: 048
     Dates: start: 20190122, end: 20190122

REACTIONS (3)
  - Nasal obstruction [Recovered/Resolved]
  - Urticaria [Recovered/Resolved]
  - Dyspnoea [Recovered/Resolved]

NARRATIVE: CASE EVENT DATE: 20190122
